FAERS Safety Report 26204028 (Version 1)
Quarter: 2025Q4

REPORT INFORMATION
  Report Type: Spontaneous
  Country: GB (occurrence: GB)
  Receive Date: 20251226
  Receipt Date: 20251226
  Transmission Date: 20260118
  Serious: Yes (Hospitalization, Other)
  Sender: AMGEN
  Company Number: GB-AMGEN-GBRSP2025251642

PATIENT
  Age: 57 Year
  Sex: Female

DRUGS (4)
  1. VECTIBIX [Suspect]
     Active Substance: PANITUMUMAB
     Indication: Colorectal cancer metastatic
     Dosage: UNK,  PORT-A-CATH
     Route: 040
     Dates: start: 2025
  2. LEUCOVORIN [Concomitant]
     Active Substance: LEUCOVORIN\LEUCOVORIN CALCIUM
     Indication: Colorectal cancer metastatic
     Dosage: UNK
     Route: 065
     Dates: start: 2025
  3. FLUOROURACIL [Concomitant]
     Active Substance: FLUOROURACIL
     Indication: Colorectal cancer metastatic
     Dosage: UNK
     Route: 065
     Dates: start: 2025
  4. IRINOTECAN [Concomitant]
     Active Substance: IRINOTECAN
     Indication: Colorectal cancer metastatic
     Dosage: UNK
     Route: 065
     Dates: start: 2025

REACTIONS (14)
  - Pneumomediastinum [Unknown]
  - Asthma [Recovering/Resolving]
  - Klebsiella infection [Unknown]
  - Skin swelling [Recovered/Resolved]
  - Colorectal cancer metastatic [Unknown]
  - Respiratory tract infection [Recovered/Resolved]
  - Pulmonary hilum mass [Unknown]
  - Skin tightness [Unknown]
  - Dysphagia [Unknown]
  - Crepitations [Recovered/Resolved]
  - Emphysema [Recovering/Resolving]
  - Erythema [Unknown]
  - Hypersensitivity [Recovering/Resolving]
  - Therapy partial responder [Unknown]

NARRATIVE: CASE EVENT DATE: 20250101
